FAERS Safety Report 10243133 (Version 1)
Quarter: 2014Q2

REPORT INFORMATION
  Report Type: Report from Study
  Country: BR (occurrence: BR)
  Receive Date: 20140618
  Receipt Date: 20140618
  Transmission Date: 20141212
  Serious: Yes (Hospitalization, Other)
  Sender: FDA-Public Use
  Company Number: BR-US-EMD SERONO, INC.-7297042

PATIENT
  Age: 38 Year
  Sex: Female

DRUGS (10)
  1. REBIF [Suspect]
     Indication: RELAPSING-REMITTING MULTIPLE SCLEROSIS
     Dates: start: 20110510
  2. CENTRUM                            /00554501/ [Concomitant]
     Indication: PRODUCT USED FOR UNKNOWN INDICATION
  3. B COMPLEX                          /00212701/ [Concomitant]
     Indication: PRODUCT USED FOR UNKNOWN INDICATION
  4. OMEGA 3 [Concomitant]
     Indication: PRODUCT USED FOR UNKNOWN INDICATION
  5. COLLAGEN [Concomitant]
     Indication: PRODUCT USED FOR UNKNOWN INDICATION
  6. VITAMIN C                          /00008001/ [Concomitant]
     Indication: PRODUCT USED FOR UNKNOWN INDICATION
  7. LINSEED OIL [Concomitant]
     Indication: PRODUCT USED FOR UNKNOWN INDICATION
  8. CYNARA CARDUNCULUS [Concomitant]
     Indication: PRODUCT USED FOR UNKNOWN INDICATION
  9. COCONUT OIL [Concomitant]
     Indication: PRODUCT USED FOR UNKNOWN INDICATION
  10. TRAMADOL [Concomitant]
     Indication: PRODUCT USED FOR UNKNOWN INDICATION

REACTIONS (5)
  - Multiple sclerosis relapse [Recovered/Resolved]
  - Central obesity [Recovered/Resolved]
  - Central obesity [Recovered/Resolved]
  - Nasal disorder [Recovered/Resolved]
  - Stress [Recovered/Resolved]
